FAERS Safety Report 8145445-1 (Version None)
Quarter: 2012Q1

REPORT INFORMATION
  Report Type: 
  Country: None (occurrence: None)
  Receive Date: 20120217
  Receipt Date: 20120209
  Transmission Date: 20120608
  Serious: Yes (Hospitalization)
  Sender: FDA-Public Use
  Company Number: BE-ELI_LILLY_AND_COMPANY-BE201202002915

PATIENT
  Sex: Female

DRUGS (4)
  1. EFFIENT [Suspect]
     Dosage: 10 MG, UNK
  2. BISOPROLOL FUMARATE [Concomitant]
  3. ZESTRIL [Concomitant]
  4. LIPITOR [Concomitant]

REACTIONS (1)
  - CEREBROVASCULAR ACCIDENT [None]
